FAERS Safety Report 16387263 (Version 2)
Quarter: 2025Q4

REPORT INFORMATION
  Report Type: Spontaneous
  Country: EU (occurrence: EU)
  Receive Date: 20190604
  Receipt Date: 20251208
  Transmission Date: 20260118
  Serious: Yes (Other)
  Sender: ALKEM
  Company Number: None

PATIENT
  Age: 12 Year
  Sex: Female
  Weight: 28 kg

DRUGS (13)
  1. MYCOPHENOLATE MOFETIL [Suspect]
     Active Substance: MYCOPHENOLATE MOFETIL
     Indication: Acute kidney injury
     Dosage: 600 MILLIGRAM/SQ. METER
     Route: 065
  2. COLCHICINE [Suspect]
     Active Substance: COLCHICINE
     Indication: Capillary leak syndrome
     Dosage: 10 MICROGRAM/KILOGRAM, QD
     Route: 065
  3. COLCHICINE [Suspect]
     Active Substance: COLCHICINE
     Indication: Polyserositis
     Dosage: 1 MILLIGRAM, QD
     Route: 065
  4. COLCHICINE [Suspect]
     Active Substance: COLCHICINE
     Dosage: 0.5 MILLIGRAM, QD
     Route: 048
  5. COLCHICINE [Suspect]
     Active Substance: COLCHICINE
     Dosage: 0.25 MILLIGRAM, QD (DAY 6)
     Route: 065
  6. VANCOMYCIN [Suspect]
     Active Substance: VANCOMYCIN
     Indication: Product used for unknown indication
     Dosage: UNK
     Route: 065
  7. METHYLPREDNISOLONE [Suspect]
     Active Substance: METHYLPREDNISOLONE
     Indication: Immunosuppressant drug therapy
     Dosage: UNK (2-5 MG/KG PER DOSE)
     Route: 065
  8. METHYLPREDNISOLONE [Suspect]
     Active Substance: METHYLPREDNISOLONE
     Indication: Acute kidney injury
     Dosage: 10 MILLIGRAM/KILOGRAM (EVERY 2 DAY)
     Route: 042
  9. ACYCLOVIR [Suspect]
     Active Substance: ACYCLOVIR
     Indication: Product used for unknown indication
     Dosage: UNK
     Route: 065
  10. AMIKACIN [Suspect]
     Active Substance: AMIKACIN
     Indication: Product used for unknown indication
     Dosage: UNK
     Route: 065
  11. CYCLOSPORINE [Suspect]
     Active Substance: CYCLOSPORINE
     Indication: Immunosuppressant drug therapy
     Dosage: UNK
     Route: 065
  12. PREDNISONE [Suspect]
     Active Substance: PREDNISONE
     Indication: Immunosuppressant drug therapy
     Dosage: UNK
     Route: 065
  13. ALBUMIN HUMAN [Concomitant]
     Active Substance: ALBUMIN HUMAN
     Indication: Hypoalbuminaemia
     Dosage: UNK, QD
     Route: 065

REACTIONS (7)
  - Acute kidney injury [Recovered/Resolved]
  - Nephropathy toxic [Unknown]
  - Renal impairment [Unknown]
  - Leukopenia [Recovered/Resolved]
  - Sepsis [Unknown]
  - Oliguria [Unknown]
  - Therapy non-responder [Unknown]
